FAERS Safety Report 14637746 (Version 1)
Quarter: 2018Q1

REPORT INFORMATION
  Report Type: Spontaneous
  Country: US (occurrence: US)
  Receive Date: 20180313
  Receipt Date: 20180313
  Transmission Date: 20180509
  Serious: No
  Sender: FDA-Public Use
  Company Number: None

PATIENT
  Sex: Female

DRUGS (2)
  1. LEXAPRO [Suspect]
     Active Substance: ESCITALOPRAM OXALATE
  2. BUPROPION. [Suspect]
     Active Substance: BUPROPION

REACTIONS (3)
  - Libido decreased [None]
  - Weight increased [None]
  - Anxiety [None]
